FAERS Safety Report 9390869 (Version 4)
Quarter: 2013Q4

REPORT INFORMATION
  Report Type: Spontaneous
  Country: US (occurrence: None)
  Receive Date: 20130705
  Receipt Date: 20131002
  Transmission Date: 20140711
  Serious: Yes (Disabling, Other)
  Sender: FDA-Public Use
  Company Number: ACO_37045_2013

PATIENT
  Age: 51 Year
  Sex: Female
  Weight: 59 kg

DRUGS (4)
  1. AMPYRA [Suspect]
     Indication: GAIT DISTURBANCE
     Route: 048
     Dates: start: 20120917, end: 201309
  2. AMPYRA [Suspect]
     Indication: MULTIPLE SCLEROSIS
     Route: 048
     Dates: start: 20120917, end: 201309
  3. NUEDEXTA (DEXTROMETHORPAN HYDROBROMIDE, QUINIDINE SULFATE) [Concomitant]
  4. BACLOFEN (BACLOFEN) [Concomitant]

REACTIONS (15)
  - Abasia [None]
  - Tremor [None]
  - Vision blurred [None]
  - Speech disorder [None]
  - Multiple sclerosis [None]
  - Tremor [None]
  - Activities of daily living impaired [None]
  - Dysstasia [None]
  - Multiple sclerosis [None]
  - Condition aggravated [None]
  - Head titubation [None]
  - Foot fracture [None]
  - Dysstasia [None]
  - Vision blurred [None]
  - Fall [None]
